FAERS Safety Report 13194320 (Version 4)
Quarter: 2021Q4

REPORT INFORMATION
  Report Type: Spontaneous
  Country: US (occurrence: US)
  Receive Date: 20170207
  Receipt Date: 20211102
  Transmission Date: 20220303
  Serious: No
  Sender: FDA-Public Use
  Company Number: US-JAZZ-2016-US-023755

PATIENT
  Age: 44 Year
  Sex: Female
  Weight: 70.295 kg

DRUGS (5)
  1. XYREM [Suspect]
     Active Substance: SODIUM OXYBATE
     Indication: Narcolepsy
     Dosage: 2.25G, BID
     Route: 048
     Dates: start: 201212, end: 2012
  2. XYREM [Suspect]
     Active Substance: SODIUM OXYBATE
     Indication: Cataplexy
     Dosage: DOSE ADJUSTMENT
     Route: 048
     Dates: start: 2012, end: 2012
  3. XYREM [Suspect]
     Active Substance: SODIUM OXYBATE
     Dosage: 4.5G, BID
     Route: 048
     Dates: start: 2013
  4. NUVIGIL [Concomitant]
     Active Substance: ARMODAFINIL
  5. LEXAPRO [Concomitant]
     Active Substance: ESCITALOPRAM OXALATE

REACTIONS (5)
  - Fall [Recovered/Resolved]
  - Joint injury [Not Recovered/Not Resolved]
  - Weight decreased [Recovered/Resolved]
  - Pain [Unknown]
  - Decreased appetite [Unknown]

NARRATIVE: CASE EVENT DATE: 20161006
